FAERS Safety Report 17533619 (Version 2)
Quarter: 2020Q1

REPORT INFORMATION
  Report Type: Report from Study
  Country: IT (occurrence: IT)
  Receive Date: 20200312
  Receipt Date: 20200313
  Transmission Date: 20200409
  Serious: Yes (Death, Other)
  Sender: FDA-Public Use
  Company Number: IT-TAKEDA-2020TUS013655

PATIENT
  Age: 62 Year
  Sex: Male

DRUGS (2)
  1. BORTEZOMIB. [Suspect]
     Active Substance: BORTEZOMIB
     Indication: PLASMA CELL MYELOMA
     Dosage: 2.3 MILLIGRAM
     Route: 042
     Dates: start: 20191128, end: 20191217
  2. DEXAMETHASONE. [Concomitant]
     Active Substance: DEXAMETHASONE
     Indication: PLASMA CELL MYELOMA
     Dosage: UNK
     Route: 065

REACTIONS (10)
  - Thrombocytopenia [Fatal]
  - Duodenitis [Fatal]
  - Dysphonia [Fatal]
  - Peripheral motor neuropathy [Fatal]
  - Gastritis [Fatal]
  - Sensorimotor disorder [Fatal]
  - Oral candidiasis [Fatal]
  - Ileus paralytic [Fatal]
  - Oesophagitis [Fatal]
  - Hypotension [Fatal]

NARRATIVE: CASE EVENT DATE: 20191213
